FAERS Safety Report 5686588-1 (Version None)
Quarter: 2008Q1

REPORT INFORMATION
  Report Type: 
  Country: None (occurrence: None)
  Receive Date: 20080328
  Receipt Date: 20070514
  Transmission Date: 20080703
  Serious: No
  Sender: FDA-Public Use
  Company Number: US-BAYER-US-2007-017474

PATIENT
  Age: 46 Year
  Sex: Female
  Weight: 70 kg

DRUGS (2)
  1. MIRENA [Suspect]
     Indication: VAGINAL HAEMORRHAGE
     Route: 015
     Dates: start: 20070502
  2. CYTOTEC [Concomitant]
     Dates: start: 20070501

REACTIONS (4)
  - ABDOMINAL PAIN [None]
  - HEADACHE [None]
  - VAGINAL HAEMORRHAGE [None]
  - VARICOPHLEBITIS [None]
